FAERS Safety Report 24318638 (Version 1)
Quarter: 2024Q3

REPORT INFORMATION
  Report Type: Spontaneous
  Country: FR (occurrence: FR)
  Receive Date: 20240913
  Receipt Date: 20240913
  Transmission Date: 20241017
  Serious: Yes (Hospitalization)
  Sender: MYLAN
  Company Number: None

PATIENT
  Age: 49 Year
  Sex: Male
  Weight: 63.2 kg

DRUGS (4)
  1. TRAMADOL HYDROCHLORIDE [Suspect]
     Active Substance: TRAMADOL HYDROCHLORIDE
     Indication: Product used for unknown indication
     Dosage: 1 MILLIGRAM, QD
     Route: 048
  2. ALPELISIB [Suspect]
     Active Substance: ALPELISIB
     Indication: Growth disorder
     Dosage: 250 MILLIGRAM, QD
     Route: 048
     Dates: start: 20240724, end: 20240725
  3. ALPELISIB [Suspect]
     Active Substance: ALPELISIB
     Dosage: 125 MILLIGRAM, QD
     Route: 048
     Dates: start: 20240726, end: 20240816
  4. ALPELISIB [Suspect]
     Active Substance: ALPELISIB
     Dosage: 62.5 MILLIGRAM, QD
     Route: 048
     Dates: start: 20240817

REACTIONS (2)
  - Hyperglycaemia [Recovered/Resolved]
  - Eosinophilia [Not Recovered/Not Resolved]

NARRATIVE: CASE EVENT DATE: 20240725
